FAERS Safety Report 24980534 (Version 1)
Quarter: 2025Q1

REPORT INFORMATION
  Report Type: Report from Study
  Country: US (occurrence: US)
  Receive Date: 20250218
  Receipt Date: 20250218
  Transmission Date: 20250408
  Serious: Yes (Hospitalization, Other)
  Sender: ALEXION PHARMACEUTICALS
  Company Number: US-AstraZeneca-2021A071125

PATIENT
  Weight: 68.946 kg

DRUGS (12)
  1. NEXIUM 24HR [Suspect]
     Active Substance: ESOMEPRAZOLE MAGNESIUM
  2. TAGRISSO [Suspect]
     Active Substance: OSIMERTINIB
  3. METOPROLOL TARTRATE [Suspect]
     Active Substance: METOPROLOL TARTRATE
  4. ANASTROZOLE [Concomitant]
     Active Substance: ANASTROZOLE
  5. HYDROCHLOROTHIAZIDE [Concomitant]
     Active Substance: HYDROCHLOROTHIAZIDE
  6. COENZYME Q10 [Concomitant]
     Active Substance: DIETARY SUPPLEMENT\UBIDECARENONE
     Indication: Cardiac disorder
  7. COENZYME Q10 [Concomitant]
     Active Substance: DIETARY SUPPLEMENT\UBIDECARENONE
     Indication: Gastrointestinal haemorrhage
  8. VITAMIN D3 [Concomitant]
     Active Substance: CHOLECALCIFEROL
     Indication: Bone disorder
  9. CALCIUM [Concomitant]
     Active Substance: CALCIUM
     Indication: Calcium deficiency
  10. FOLIC ACID [Concomitant]
     Active Substance: FOLIC ACID
     Indication: Prophylaxis
  11. VITAMINS [Concomitant]
     Active Substance: VITAMINS
     Indication: Supplementation therapy
  12. MIRALAX [Concomitant]
     Active Substance: POLYETHYLENE GLYCOL 3350
     Indication: Constipation

REACTIONS (11)
  - Diarrhoea [Recovered/Resolved]
  - Weight fluctuation [Unknown]
  - Feeding disorder [Recovered/Resolved]
  - Taste disorder [Recovering/Resolving]
  - Eye disorder [Not Recovered/Not Resolved]
  - Hypoacusis [Recovering/Resolving]
  - Haemorrhoids [Not Recovered/Not Resolved]
  - Constipation [Recovering/Resolving]
  - Haemorrhoidal haemorrhage [Not Recovered/Not Resolved]
  - Dry eye [Not Recovered/Not Resolved]
  - Product use issue [Unknown]
